FAERS Safety Report 7218680-4 (Version None)
Quarter: 2011Q1

REPORT INFORMATION
  Report Type: 
  Country: None (occurrence: None)
  Receive Date: 20110110
  Receipt Date: 20100902
  Transmission Date: 20110831
  Serious: No
  Sender: FDA-Public Use
  Company Number: US-ABBOTT-10P-163-0667462-00

PATIENT
  Age: 69 Year
  Sex: Female

DRUGS (2)
  1. PERCOCET [Concomitant]
     Indication: PAIN
  2. VICODIN [Suspect]
     Indication: PAIN

REACTIONS (4)
  - ERUCTATION [None]
  - ABDOMINAL DISCOMFORT [None]
  - ABDOMINAL PAIN UPPER [None]
  - CONSTIPATION [None]
